FAERS Safety Report 24120040 (Version 1)
Quarter: 2024Q3

REPORT INFORMATION
  Report Type: Spontaneous
  Country: US (occurrence: US)
  Receive Date: 20240722
  Receipt Date: 20240722
  Transmission Date: 20241017
  Serious: Yes (Other)
  Sender: PFIZER
  Company Number: US-SEATTLE GENETICS-2023SGN10808

PATIENT
  Age: 71 Year
  Sex: Female
  Weight: 66.21 kg

DRUGS (2)
  1. TUKYSA [Suspect]
     Active Substance: TUCATINIB
     Indication: Breast cancer female
     Dosage: 150 MG WITH 2 TABS 50 MG TOTAL 250 MG 2X/DAY
     Route: 048
     Dates: start: 20221130
  2. TUKYSA [Suspect]
     Active Substance: TUCATINIB
     Indication: Metastases to skin
     Dosage: 50 MG 2 TABS TOTAL 100 MG WITH 150 MG TAB
     Route: 048
     Dates: start: 20230811

REACTIONS (1)
  - Cataract [Unknown]

NARRATIVE: CASE EVENT DATE: 20230101
